FAERS Safety Report 4951046-6 (Version None)
Quarter: 2006Q1

REPORT INFORMATION
  Report Type: 
  Country: None (occurrence: None)
  Receive Date: 20060322
  Receipt Date: 20051123
  Transmission Date: 20060701
  Serious: Yes (Hospitalization)
  Sender: FDA-Public Use
  Company Number: US-MERCK-0511USA04017

PATIENT
  Age: 51 Year
  Sex: Female
  Weight: 61 kg

DRUGS (6)
  1. VIOXX [Suspect]
     Indication: BACK PAIN
     Route: 048
     Dates: start: 19991110, end: 20000801
  2. VIOXX [Suspect]
     Route: 048
     Dates: start: 20020801, end: 20020901
  3. ALBUTEROL [Concomitant]
     Indication: CHRONIC OBSTRUCTIVE PULMONARY DISEASE
     Route: 065
     Dates: start: 19991001
  4. LEVAQUIN [Concomitant]
     Indication: PNEUMONIA
     Route: 065
     Dates: start: 19991001
  5. FENESIN [Concomitant]
     Indication: ANTITUSSIVE THERAPY
     Route: 065
     Dates: start: 19991001
  6. ACETAMINOPHEN AND CODEINE [Concomitant]
     Indication: PAIN
     Route: 065
     Dates: start: 19991001, end: 20000401

REACTIONS (7)
  - ANXIETY [None]
  - DEEP VEIN THROMBOSIS [None]
  - MENINGITIS PNEUMOCOCCAL [None]
  - NON-HODGKIN'S LYMPHOMA [None]
  - PNEUMONIA [None]
  - PULMONARY EMBOLISM [None]
  - UPPER RESPIRATORY TRACT INFECTION [None]
